FAERS Safety Report 4325262-0 (Version None)
Quarter: 2004Q1

REPORT INFORMATION
  Report Type: 
  Country: None (occurrence: None)
  Receive Date: 20040324
  Receipt Date: 20040317
  Transmission Date: 20041129
  Serious: Yes (Hospitalization)
  Sender: FDA-Public Use
  Company Number: 2004204097FR

PATIENT
  Age: 36 Year
  Sex: Male

DRUGS (5)
  1. XANAX [Suspect]
     Dosage: ORAL
     Route: 048
  2. TOPIRAMATE [Suspect]
     Dosage: ORAL
     Route: 048
  3. TRILEPTAL [Suspect]
     Dosage: 1800 MG/DAY, ORAL
     Route: 048
  4. STABLON(TIANEPTINE) [Suspect]
     Dosage: 12.5 MG, ORAL
     Route: 048
  5. ALVOCARDYL(PROPRANOLOL) [Suspect]
     Dosage: 40 MG, ORAL
     Route: 048

REACTIONS (1)
  - AZOOSPERMIA [None]
